FAERS Safety Report 12773078 (Version 1)
Quarter: 2016Q3

REPORT INFORMATION
  Report Type: Spontaneous
  Country: US (occurrence: US)
  Receive Date: 20160922
  Receipt Date: 20160922
  Transmission Date: 20161109
  Serious: No
  Sender: FDA-Public Use
  Company Number: US-BION-20160295

PATIENT
  Age: 69 Year
  Sex: Male
  Weight: 86.18 kg

DRUGS (1)
  1. ZYRTEC [Suspect]
     Active Substance: CETIRIZINE HYDROCHLORIDE
     Indication: RASH
     Dosage: 2 DSF WITHIN  6 HOURS
     Route: 048
     Dates: start: 20160711

REACTIONS (3)
  - Accidental overdose [Unknown]
  - Inappropriate schedule of drug administration [None]
  - Product use issue [Unknown]

NARRATIVE: CASE EVENT DATE: 20160711
